FAERS Safety Report 19488443 (Version 2)
Quarter: 2021Q3

REPORT INFORMATION
  Report Type: Spontaneous
  Country: JP (occurrence: JP)
  Receive Date: 20210702
  Receipt Date: 20210714
  Transmission Date: 20211014
  Serious: Yes (Other)
  Sender: FDA-Public Use
  Company Number: NVSC2021JP147256

PATIENT
  Age: 3 Month
  Sex: Female

DRUGS (12)
  1. METHOTREXATE. [Suspect]
     Active Substance: METHOTREXATE
     Indication: ACUTE MYELOID LEUKAEMIA
     Dosage: 12 MG
     Route: 037
  2. CYTARABINE. [Suspect]
     Active Substance: CYTARABINE
     Indication: ACUTE MYELOID LEUKAEMIA
     Dosage: 6.7 MG/KG(VIA 12 H, DAYS 6?12)
     Route: 042
  3. HYDROCORTISONE. [Suspect]
     Active Substance: HYDROCORTISONE
     Indication: ACUTE MYELOID LEUKAEMIA
     Dosage: 25 MG
     Route: 037
  4. CYTARABINE. [Suspect]
     Active Substance: CYTARABINE
     Dosage: UNK (DAY1)
     Route: 037
  5. MITOXANTRONE [Suspect]
     Active Substance: MITOXANTRONE HYDROCHLORIDE
     Indication: ACUTE MYELOID LEUKAEMIA
     Dosage: 0.17 MG/KG (DAYS 6?10)
     Route: 065
  6. ETOPOSIDE. [Suspect]
     Active Substance: ETOPOSIDE
     Dosage: 3.3 MG/KG (DAYS1?5)
     Route: 065
  7. CYTARABINE. [Suspect]
     Active Substance: CYTARABINE
     Dosage: 30 MG (TRIPLE THERAPY)
     Route: 037
  8. HYDROCORTISONE. [Suspect]
     Active Substance: HYDROCORTISONE
     Dosage: UNK (DAY 1)
     Route: 037
  9. ETOPOSIDE. [Suspect]
     Active Substance: ETOPOSIDE
     Indication: ACUTE MYELOID LEUKAEMIA
     Dosage: 5 MG/KG (DAY 1?5)
     Route: 065
  10. METHOTREXATE. [Suspect]
     Active Substance: METHOTREXATE
     Dosage: UNK
     Route: 037
  11. CYTARABINE. [Suspect]
     Active Substance: CYTARABINE
     Dosage: 100 MG/KG, Q12H(HIGH DOSE DAYS1?3)
     Route: 065
  12. IDARUBICIN [Suspect]
     Active Substance: IDARUBICIN
     Indication: ACUTE MYELOID LEUKAEMIA
     Dosage: 0.33 MG/KG
     Route: 065

REACTIONS (1)
  - Stomatitis [Unknown]
